FAERS Safety Report 5399267-5 (Version None)
Quarter: 2007Q3

REPORT INFORMATION
  Report Type: 
  Country: None (occurrence: None)
  Receive Date: 20070727
  Receipt Date: 20070718
  Transmission Date: 20080115
  Serious: Yes (Disabling)
  Sender: FDA-Public Use
  Company Number: B0476985A

PATIENT
  Age: 56 Year
  Sex: Male

DRUGS (12)
  1. ABACAVIR [Suspect]
     Indication: LIPOATROPHY
     Dosage: 300MG TWICE PER DAY
     Route: 048
     Dates: start: 20070527, end: 20070614
  2. LAMIVUDINE [Concomitant]
     Dosage: 150MG TWICE PER DAY
     Route: 048
  3. KALETRA [Concomitant]
     Route: 048
  4. ACIDRINE [Concomitant]
     Route: 048
  5. QUININE [Concomitant]
     Route: 048
  6. LOPERAMIDE HCL [Concomitant]
     Dosage: 2MG TWICE PER DAY
     Route: 048
  7. ROSUVASTATIN [Concomitant]
     Route: 048
  8. PROPRANOLOL [Concomitant]
     Route: 048
  9. EZETIMIBE [Concomitant]
     Route: 048
  10. COAPROVEL [Concomitant]
  11. INSULIN NOVO ACTRAPID [Concomitant]
  12. TILADE [Concomitant]

REACTIONS (4)
  - DISABILITY [None]
  - DRUG HYPERSENSITIVITY [None]
  - FATIGUE [None]
  - MALAISE [None]
